FAERS Safety Report 8577471-2 (Version None)
Quarter: 2012Q3

REPORT INFORMATION
  Report Type: 
  Country: None (occurrence: None)
  Receive Date: 20120807
  Receipt Date: 20120709
  Transmission Date: 20120928
  Serious: No
  Sender: FDA-Public Use
  Company Number: US-009507513-1203USA04646

PATIENT

DRUGS (2)
  1. LYRICA [Concomitant]
     Dosage: UNK MG, UNK
     Route: 048
  2. FOSAMAX [Suspect]
     Route: 048
     Dates: end: 20110601

REACTIONS (27)
  - TEMPOROMANDIBULAR JOINT SYNDROME [None]
  - LUMBAR VERTEBRAL FRACTURE [None]
  - EAR PAIN [None]
  - FOOT FRACTURE [None]
  - MYALGIA [None]
  - BLOOD PRESSURE INCREASED [None]
  - MYOFASCIAL PAIN SYNDROME [None]
  - PAIN IN EXTREMITY [None]
  - INTERVERTEBRAL DISC DEGENERATION [None]
  - OSTEOPOROSIS [None]
  - ARTHRITIS [None]
  - MUSCULOSKELETAL PAIN [None]
  - NEURALGIA [None]
  - WALKING AID USER [None]
  - NECK PAIN [None]
  - HEADACHE [None]
  - MUSCLE MASS [None]
  - SENSATION OF HEAVINESS [None]
  - ASTIGMATISM [None]
  - BURNING SENSATION [None]
  - SPONDYLOLISTHESIS [None]
  - MUSCLE SPASMS [None]
  - TINNITUS [None]
  - SCOLIOSIS [None]
  - VISION BLURRED [None]
  - MUSCULAR WEAKNESS [None]
  - INTERVERTEBRAL DISC PROTRUSION [None]
